FAERS Safety Report 8445294-0 (Version None)
Quarter: 2012Q2

REPORT INFORMATION
  Report Type: 
  Country: None (occurrence: None)
  Receive Date: 20120618
  Receipt Date: 20120607
  Transmission Date: 20120825
  Serious: Yes (Other)
  Sender: FDA-Public Use
  Company Number: US-ASTRAZENECA-2012SE38582

PATIENT
  Age: 48 Year
  Sex: Male

DRUGS (1)
  1. QUETIAPINE [Suspect]
     Indication: BIPOLAR DISORDER
     Dosage: GERNERIC
     Route: 048
     Dates: start: 20120401

REACTIONS (2)
  - MANIA [None]
  - HIV INFECTION [None]
